FAERS Safety Report 6619803-8 (Version None)
Quarter: 2010Q1

REPORT INFORMATION
  Report Type: 
  Country: None (occurrence: None)
  Receive Date: 20100309
  Receipt Date: 20100305
  Transmission Date: 20100710
  Serious: Yes (Death, Hospitalization)
  Sender: FDA-Public Use
  Company Number: PHHY2010NL07558

PATIENT
  Sex: Male

DRUGS (5)
  1. ZOMETA [Suspect]
     Dosage: 4 MG/ML, UNK
     Dates: start: 20091215
  2. ZOMETA [Suspect]
     Dosage: 4 MG/ML, UNK
     Dates: start: 20100112
  3. ZOMETA [Suspect]
     Dosage: 4 MG/ML, UNK
     Dates: start: 20100209
  4. PREDNISOLON [Concomitant]
  5. BLOOD TRANSFUSION, AUXILIARY PRODUCTS [Concomitant]

REACTIONS (4)
  - DEATH [None]
  - FATIGUE [None]
  - HAEMORRHAGE [None]
  - SURGERY [None]
